FAERS Safety Report 5129776-5 (Version None)
Quarter: 2006Q4

REPORT INFORMATION
  Report Type: 
  Country: None (occurrence: None)
  Receive Date: 20061018
  Receipt Date: 20061002
  Transmission Date: 20070319
  Serious: Yes (Hospitalization)
  Sender: FDA-Public Use
  Company Number: US-MERCK-0610USA01110

PATIENT
  Age: 58 Year
  Sex: Female

DRUGS (6)
  1. COSOPT [Suspect]
     Indication: GLAUCOMA
     Route: 047
     Dates: start: 20050501
  2. DIOVAN [Concomitant]
     Route: 065
  3. ZOLOFT [Concomitant]
     Route: 065
  4. LIPITOR [Concomitant]
     Route: 065
  5. LUMIGAN [Suspect]
     Route: 065
  6. ALPHAGAN P [Suspect]
     Route: 065

REACTIONS (3)
  - HYPONATRAEMIA [None]
  - MENTAL DISORDER [None]
  - MYOPIA [None]
